FAERS Safety Report 10777224 (Version 1)
Quarter: 2015Q1

REPORT INFORMATION
  Report Type: Spontaneous
  Country: US (occurrence: US)
  Receive Date: 20150209
  Receipt Date: 20150209
  Transmission Date: 20150721
  Serious: Yes (Hospitalization, Other)
  Sender: FDA-Public Use
  Company Number: US-RECKITT BENCKISER PHARMACEUTICAL, INC-RB-62708-2014

PATIENT

DRUGS (7)
  1. KLONOPIN [Suspect]
     Active Substance: CLONAZEPAM
     Indication: ANXIETY
     Route: 064
     Dates: start: 201303, end: 20140103
  2. NICOTINE. [Suspect]
     Active Substance: NICOTINE
     Indication: PRODUCT USED FOR UNKNOWN INDICATION
     Dosage: MOTHER^S DOSING DETAILS UNKNOWN, MOTHER QUIT IN SECOND TRIMESTER
     Route: 064
     Dates: start: 201303, end: 2013
  3. KLONOPIN [Suspect]
     Active Substance: CLONAZEPAM
     Dosage: MOTHER^S DOSING DETAILS UNKNOWN
     Route: 063
     Dates: start: 201401, end: 201401
  4. SUBUTEX [Suspect]
     Active Substance: BUPRENORPHINE HYDROCHLORIDE
     Dosage: MOTHER CUTS TABLET IN HALF AND TAKES ONE HALF 4 TIMES DAILY
     Route: 063
     Dates: start: 20140103
  5. CLONIDINE. [Suspect]
     Active Substance: CLONIDINE
     Dosage: MOTHER^S DOSING DETAILS UNKNOWN
     Route: 063
     Dates: start: 201401, end: 201401
  6. SUBUTEX [Suspect]
     Active Substance: BUPRENORPHINE HYDROCHLORIDE
     Indication: DRUG DEPENDENCE
     Dosage: MOTHER CUTS TABLET IN HALF AND TAKES ONE HALF 4 TIMES DAILY
     Route: 064
     Dates: start: 201303, end: 20140103
  7. CLONIDINE. [Suspect]
     Active Substance: CLONIDINE
     Indication: ANXIETY
     Dosage: MOTHER^S DOSING DETAILS UNKNOWN
     Route: 064
     Dates: start: 201303

REACTIONS (5)
  - Drug withdrawal syndrome neonatal [Recovering/Resolving]
  - Agitation neonatal [Recovering/Resolving]
  - Exposure during breast feeding [Not Recovered/Not Resolved]
  - Foetal exposure during pregnancy [Recovered/Resolved]
  - Tremor neonatal [Recovering/Resolving]

NARRATIVE: CASE EVENT DATE: 201303
